FAERS Safety Report 4638995-3 (Version None)
Quarter: 2005Q2

REPORT INFORMATION
  Report Type: 
  Country: None (occurrence: None)
  Receive Date: 20050415
  Receipt Date: 20050415
  Transmission Date: 20051028
  Serious: Yes (Life-Threatening, Hospitalization)
  Sender: FDA-Public Use
  Company Number: None

PATIENT
  Age: 22 Year
  Sex: Female
  Weight: 79.7 kg

DRUGS (7)
  1. TRILEPTAL [Suspect]
     Indication: BIPOLAR DISORDER
     Dosage: SEVERAL DAYS
  2. LISINOPRIL [Suspect]
     Indication: HYPERTENSION
     Dosage: YEARS
  3. CLONIDINE [Concomitant]
  4. TRAZODONE HCL [Concomitant]
  5. PREMARIN [Concomitant]
  6. SEROQUEL [Concomitant]
  7. CITALOPRAM HYDROBROMIDE [Concomitant]

REACTIONS (3)
  - ANGIONEUROTIC OEDEMA [None]
  - APHAGIA [None]
  - APHASIA [None]
